FAERS Safety Report 10657775 (Version 1)
Quarter: 2014Q4

REPORT INFORMATION
  Report Type: Spontaneous
  Country: US (occurrence: None)
  Receive Date: 20141216
  Receipt Date: 20141216
  Transmission Date: 20150529
  Serious: Yes (Other)
  Sender: FDA-Public Use
  Company Number: None

PATIENT
  Age: 56 Year
  Sex: Female

DRUGS (2)
  1. SOVALDI [Suspect]
     Active Substance: SOFOSBUVIR
     Indication: CHRONIC HEPATITIS C
     Dosage: 1 TABLET
     Route: 048
     Dates: start: 20141202, end: 20141215
  2. RIBASPHERE RIBAPAK [Suspect]
     Active Substance: RIBAVIRIN
     Indication: CHRONIC HEPATITIS C
     Dosage: 600 MG AM AND 400 MG PM EVERY DAY ORAL
     Route: 048
     Dates: start: 20141202, end: 20141215

REACTIONS (2)
  - Headache [None]
  - Asthenia [None]

NARRATIVE: CASE EVENT DATE: 201412
